FAERS Safety Report 25485248 (Version 3)
Quarter: 2025Q3

REPORT INFORMATION
  Report Type: Spontaneous
  Country: GB (occurrence: GB)
  Receive Date: 20250626
  Receipt Date: 20250711
  Transmission Date: 20251021
  Serious: Yes (Death, Other)
  Sender: ELI LILLY AND COMPANY
  Company Number: None

PATIENT
  Age: 55 Year
  Sex: Female

DRUGS (2)
  1. MOUNJARO [Suspect]
     Active Substance: TIRZEPATIDE
     Indication: Weight control
     Route: 065
     Dates: start: 202501
  2. VENTOLIN [Concomitant]
     Active Substance: ALBUTEROL SULFATE
     Indication: Product used for unknown indication

REACTIONS (6)
  - Coronary artery thrombosis [Fatal]
  - Arteriosclerosis coronary artery [Fatal]
  - Dyspnoea [Unknown]
  - Crying [Unknown]
  - Abnormal loss of weight [Unknown]
  - Malaise [Unknown]

NARRATIVE: CASE EVENT DATE: 20250404
